FAERS Safety Report 18216994 (Version 1)
Quarter: 2020Q3

REPORT INFORMATION
  Report Type: Spontaneous
  Country: US (occurrence: US)
  Receive Date: 20200901
  Receipt Date: 20200901
  Transmission Date: 20201103
  Serious: Yes (Hospitalization)
  Sender: FDA-Public Use
  Company Number: US-GLAND PHARMA LIMITED-2089276

PATIENT
  Age: 62 Year
  Sex: Female

DRUGS (3)
  1. PACLITAXEL. [Suspect]
     Active Substance: PACLITAXEL
     Indication: HER2 NEGATIVE BREAST CANCER
     Route: 042
  2. PACLITAXEL. [Suspect]
     Active Substance: PACLITAXEL
     Indication: HORMONE RECEPTOR POSITIVE BREAST CANCER
     Route: 042
  3. PEXIDARTINIB [Suspect]
     Active Substance: PEXIDARTINIB
     Route: 048

REACTIONS (2)
  - Vanishing bile duct syndrome [Recovering/Resolving]
  - Drug-induced liver injury [Recovering/Resolving]
